FAERS Safety Report 6496242-4 (Version None)
Quarter: 2009Q4

REPORT INFORMATION
  Report Type: 
  Country: None (occurrence: None)
  Receive Date: 20091214
  Receipt Date: 20091030
  Transmission Date: 20100525
  Serious: No
  Sender: FDA-Public Use
  Company Number: US-BRISTOL-MYERS SQUIBB COMPANY-14838601

PATIENT
  Age: 59 Year
  Sex: Female
  Weight: 58 kg

DRUGS (5)
  1. ABILIFY [Suspect]
     Indication: BIPOLAR II DISORDER
     Dosage: THERAPY STARTED 3 MONTHS AGO.
     Dates: start: 20090101
  2. SYNTHROID [Concomitant]
  3. PROZAC [Concomitant]
  4. NEURONTIN [Concomitant]
  5. PREMARIN [Concomitant]

REACTIONS (1)
  - VISION BLURRED [None]
